FAERS Safety Report 8310624-7 (Version None)
Quarter: 2012Q2

REPORT INFORMATION
  Report Type: 
  Country: None (occurrence: None)
  Receive Date: 20120425
  Receipt Date: 20120425
  Transmission Date: 20120825
  Serious: Yes (Life-Threatening, Hospitalization, Other)
  Sender: FDA-Public Use
  Company Number: None

PATIENT

DRUGS (1)
  1. AZATHIOPRINE [Suspect]

REACTIONS (12)
  - HEPATOMEGALY [None]
  - CHILLS [None]
  - HEART RATE DECREASED [None]
  - MALAISE [None]
  - ASTHENIA [None]
  - HEART RATE INCREASED [None]
  - BODY TEMPERATURE INCREASED [None]
  - APPARENT DEATH [None]
  - UNEVALUABLE EVENT [None]
  - BLOOD PRESSURE DECREASED [None]
  - FATIGUE [None]
  - TREMOR [None]
